FAERS Safety Report 8047502-7 (Version None)
Quarter: 2012Q1

REPORT INFORMATION
  Report Type: 
  Country: None (occurrence: None)
  Receive Date: 20120116
  Receipt Date: 20120105
  Transmission Date: 20120608
  Serious: Yes (Death, Hospitalization)
  Sender: FDA-Public Use
  Company Number: TW-BAXTER-2011BH040288

PATIENT
  Sex: Female

DRUGS (4)
  1. EXTRANEAL [Suspect]
     Route: 033
  2. DIANEAL [Suspect]
     Route: 033
  3. DIANEAL [Suspect]
     Indication: PERITONEAL DIALYSIS
     Route: 033
  4. EXTRANEAL [Suspect]
     Indication: PERITONEAL DIALYSIS
     Route: 033

REACTIONS (3)
  - PYREXIA [None]
  - INFECTIOUS PERITONITIS [None]
  - SEPSIS [None]
